FAERS Safety Report 10128578 (Version 2)
Quarter: 2014Q2

REPORT INFORMATION
  Report Type: Report from Study
  Country: IT (occurrence: IT)
  Receive Date: 20140428
  Receipt Date: 20140505
  Transmission Date: 20141212
  Serious: Yes (Death)
  Sender: FDA-Public Use
  Company Number: IT-ROCHE-1387017

PATIENT
  Sex: 0

DRUGS (1)
  1. VALGANCICLOVIR [Suspect]
     Indication: CYTOMEGALOVIRUS INFECTION
     Dosage: AT LEAST 21 DAYS
     Route: 065

REACTIONS (2)
  - Cytomegalovirus gastrointestinal infection [Fatal]
  - Drug resistance [Unknown]
